FAERS Safety Report 7183410-1 (Version None)
Quarter: 2010Q4

REPORT INFORMATION
  Report Type: 
  Country: None (occurrence: None)
  Receive Date: 20101220
  Receipt Date: 20101220
  Transmission Date: 20110411
  Serious: Yes (Hospitalization)
  Sender: FDA-Public Use
  Company Number: None

PATIENT
  Age: 87 Year
  Sex: Female
  Weight: 68.1 kg

DRUGS (8)
  1. COUMADIN [Suspect]
     Indication: ATRIAL FIBRILLATION
     Dosage: 2.5 MG DAILY PO CHRONIC
     Route: 048
  2. SPIRONOLACTONE [Concomitant]
  3. ATENOLOL [Concomitant]
  4. ALENDRONATE [Concomitant]
  5. DICLOFENAC SODIUM [Concomitant]
  6. CONJUGATED ESTROGEN TOP. VAGINAL [Concomitant]
  7. HALCION [Concomitant]
  8. PROPRANOLOL [Concomitant]

REACTIONS (2)
  - GASTROINTESTINAL HAEMORRHAGE [None]
  - RECTAL HAEMORRHAGE [None]
